FAERS Safety Report 16212369 (Version 3)
Quarter: 2021Q4

REPORT INFORMATION
  Report Type: Spontaneous
  Country: US (occurrence: US)
  Receive Date: 20190418
  Receipt Date: 20211117
  Transmission Date: 20220303
  Serious: No
  Sender: FDA-Public Use
  Company Number: US-PFIZER INC-2019165160

PATIENT
  Age: 79 Year
  Sex: Female
  Weight: 77.098 kg

DRUGS (3)
  1. LYRICA [Suspect]
     Active Substance: PREGABALIN
     Indication: Pruritus
     Dosage: 75 MG, ONCE A DAY (AT NIGHT)
  2. LYRICA [Suspect]
     Active Substance: PREGABALIN
     Indication: Paraesthesia
  3. LYRICA [Suspect]
     Active Substance: PREGABALIN
     Indication: Restless legs syndrome

REACTIONS (2)
  - Fall [Unknown]
  - Gait disturbance [Unknown]
